FAERS Safety Report 15366473 (Version 1)
Quarter: 2018Q3

REPORT INFORMATION
  Report Type: Spontaneous
  Country: US (occurrence: US)
  Receive Date: 20180910
  Receipt Date: 20180910
  Transmission Date: 20181010
  Serious: No
  Sender: FDA-Public Use
  Company Number: US-SA-2018SA250176

PATIENT
  Sex: Female

DRUGS (17)
  1. ATORVASTATIN [Concomitant]
     Active Substance: ATORVASTATIN
     Dosage: TAB 80 MG
  2. NIFEPINE [Concomitant]
     Dosage: TAB 60 MG ER
  3. VALSARTAN. [Concomitant]
     Active Substance: VALSARTAN
     Dosage: 160 MG
  4. GABAPENTIN. [Concomitant]
     Active Substance: GABAPENTIN
     Dosage: CAP 300MG
  5. PRALUENT [Suspect]
     Active Substance: ALIROCUMAB
     Indication: TYPE V HYPERLIPIDAEMIA
     Dosage: 75 MG, QOW
     Route: 058
  6. GLYXAMBI [Concomitant]
     Active Substance: EMPAGLIFLOZIN\LINAGLIPTIN
     Dosage: TAB 25?5 MG
  7. LEVEMIR [Concomitant]
     Active Substance: INSULIN DETEMIR
     Dosage: INJ FLEXPEN
  8. LEVOTHYROXIN [Concomitant]
     Active Substance: LEVOTHYROXINE
     Dosage: TAB 50MCG
  9. METOPROLOL [METOPROLOL TARTRATE] [Concomitant]
     Dosage: TAB 25MG
  10. SUCRALFATE. [Concomitant]
     Active Substance: SUCRALFATE
     Dosage: TAB 1GM
  11. TOLTERODINE [Concomitant]
     Active Substance: TOLTERODINE
     Dosage: CAP 2 MG ER
  12. ALIROCUMAB PREFILLED PEN [Suspect]
     Active Substance: ALIROCUMAB
     Indication: TYPE V HYPERLIPIDAEMIA
     Dosage: 75 MG, QOW
     Route: 058
  13. DEXILANT [Concomitant]
     Active Substance: DEXLANSOPRAZOLE
     Dosage: CAP 60 MG
  14. LYRICA [Concomitant]
     Active Substance: PREGABALIN
     Dosage: CAP 25MG
  15. POLYETHYLENE GLYCOL [Concomitant]
     Active Substance: POLYETHYLENE GLYCOLS
  16. ESTRACE [Concomitant]
     Active Substance: ESTRADIOL
     Route: 067
  17. RANEXA [Concomitant]
     Active Substance: RANOLAZINE
     Dosage: 1000 MG

REACTIONS (2)
  - Rash [Not Recovered/Not Resolved]
  - Injection site bruising [Not Recovered/Not Resolved]
